FAERS Safety Report 9353110 (Version 1)
Quarter: 2013Q2

REPORT INFORMATION
  Report Type: Spontaneous
  Country: US (occurrence: US)
  Receive Date: 20130618
  Receipt Date: 20130618
  Transmission Date: 20140414
  Serious: Yes (Other)
  Sender: FDA-Public Use
  Company Number: US-SANOFI-AVENTIS-2013SA060355

PATIENT
  Age: 71 Year
  Sex: Male

DRUGS (2)
  1. LANTUS SOLOSTAR [Suspect]
     Indication: TYPE 2 DIABETES MELLITUS
     Dosage: 3 OR 4 YEARS DOSE:25 UNIT(S)
     Route: 051
  2. SOLOSTAR [Suspect]
     Indication: TYPE 2 DIABETES MELLITUS
     Dosage: 3 OR 4 YEARS

REACTIONS (6)
  - Road traffic accident [Unknown]
  - Back disorder [Unknown]
  - Walking disability [Unknown]
  - Limb injury [Unknown]
  - Vomiting [Unknown]
  - Pain in extremity [Unknown]
